FAERS Safety Report 9736054 (Version 1)
Quarter: 2013Q4

REPORT INFORMATION
  Report Type: Spontaneous
  Country: DE (occurrence: DE)
  Receive Date: 20131206
  Receipt Date: 20131206
  Transmission Date: 20140711
  Serious: Yes (Life-Threatening, Hospitalization, Other)
  Sender: FDA-Public Use
  Company Number: DE-TEVA-447274GER

PATIENT
  Age: 1 Day
  Sex: Male

DRUGS (4)
  1. DICLOFENAC [Suspect]
     Route: 064
  2. THYROXIN [Concomitant]
     Route: 064
  3. PREDNISOLON [Concomitant]
     Route: 064
  4. RANITIDIN [Concomitant]
     Route: 064

REACTIONS (7)
  - Large intestine perforation [Recovered/Resolved with Sequelae]
  - Cardiac hypertrophy [Unknown]
  - Ductus arteriosus premature closure [Not Recovered/Not Resolved]
  - Intraventricular haemorrhage [Unknown]
  - Neonatal hypoxia [Unknown]
  - Respiration abnormal [Unknown]
  - Scrotal swelling [Unknown]
